FAERS Safety Report 15768124 (Version 1)
Quarter: 2018Q4

REPORT INFORMATION
  Report Type: Spontaneous
  Country: TW (occurrence: TW)
  Receive Date: 20181227
  Receipt Date: 20181227
  Transmission Date: 20190205
  Serious: Yes (Other)
  Sender: FDA-Public Use
  Company Number: TW-009507513-1812TWN011964

PATIENT
  Age: 81 Year
  Sex: Female

DRUGS (1)
  1. PEMBROLIZUMAB. [Suspect]
     Active Substance: PEMBROLIZUMAB
     Indication: HEPATOCELLULAR CARCINOMA
     Dosage: 2 MG/KG, AT 3-WEEK INTERVAL

REACTIONS (3)
  - Pyrexia [Unknown]
  - Therapy partial responder [Unknown]
  - Immune-mediated adverse reaction [Unknown]
